FAERS Safety Report 8041068-3 (Version None)
Quarter: 2012Q1

REPORT INFORMATION
  Report Type: 
  Country: None (occurrence: None)
  Receive Date: 20120109
  Receipt Date: 20111227
  Transmission Date: 20120608
  Serious: No
  Sender: FDA-Public Use
  Company Number: 2011P1015353

PATIENT
  Age: 52 Year
  Sex: Male

DRUGS (1)
  1. TOBRAMYCIN [Suspect]
     Indication: GASTROINTESTINAL DISORDER
     Dosage: QID;PO 40 MG;BID;RTL 80 MG;QID;NAS
     Route: 045

REACTIONS (9)
  - TOXICITY TO VARIOUS AGENTS [None]
  - RENAL FAILURE [None]
  - CONTINUOUS HAEMODIAFILTRATION [None]
  - DIALYSIS [None]
  - RENAL TUBULAR ACIDOSIS [None]
  - NEPHROPATHY TOXIC [None]
  - ASTHENIA [None]
  - HAEMODIALYSIS [None]
  - OLIGURIA [None]
